FAERS Safety Report 24418445 (Version 5)
Quarter: 2025Q2

REPORT INFORMATION
  Report Type: Spontaneous
  Country: US (occurrence: US)
  Receive Date: 20241009
  Receipt Date: 20250408
  Transmission Date: 20250717
  Serious: Yes (Other)
  Sender: SANOFI AVENTIS
  Company Number: US-SA-2024SA290326

PATIENT
  Age: 63 Year
  Sex: Female
  Weight: 70.91 kg

DRUGS (21)
  1. REZUROCK [Suspect]
     Active Substance: BELUMOSUDIL
     Indication: Acute myeloid leukaemia
     Dosage: 200 MG, QD
     Route: 048
     Dates: start: 202407
  2. HYDROMORPHONE [Concomitant]
     Active Substance: HYDROMORPHONE
  3. ELIQUIS [Concomitant]
     Active Substance: APIXABAN
  4. DEXAMETHASONE [Concomitant]
     Active Substance: DEXAMETHASONE
  5. CLOBETASOL [Concomitant]
     Active Substance: CLOBETASOL
  6. PENTAMIDINE [Concomitant]
     Active Substance: PENTAMIDINE
  7. POSACONAZOLE [Concomitant]
     Active Substance: POSACONAZOLE
  8. POTASSIUM [Concomitant]
     Active Substance: POTASSIUM
  9. PREDNISONE [Concomitant]
     Active Substance: PREDNISONE
  10. SERTRALINE [Concomitant]
     Active Substance: SERTRALINE HYDROCHLORIDE
  11. SIROLIMUS [Concomitant]
     Active Substance: SIROLIMUS
  12. SYSTANE (HYPROMELLOSE 2910 (4000 MPA.S)) [Concomitant]
     Active Substance: HYPROMELLOSE 2910 (4000 MPA.S)
  13. TACROLIMUS [Concomitant]
     Active Substance: TACROLIMUS
  14. VALACYCLOVIR [Concomitant]
     Active Substance: VALACYCLOVIR HYDROCHLORIDE
  15. VITAMIN D3 [Concomitant]
     Active Substance: CHOLECALCIFEROL
  16. TRAZODONE [Concomitant]
     Active Substance: TRAZODONE HYDROCHLORIDE
  17. FLUCONAZOLE [Concomitant]
     Active Substance: FLUCONAZOLE
  18. POTASSIUM CHLORIDE [Concomitant]
     Active Substance: POTASSIUM CHLORIDE
  19. JAKAFI [Concomitant]
     Active Substance: RUXOLITINIB
  20. OXYCODONE [Concomitant]
     Active Substance: OXYCODONE
  21. MIRTAZAPINE [Concomitant]
     Active Substance: MIRTAZAPINE

REACTIONS (5)
  - Hypoxia [Unknown]
  - Vision blurred [Unknown]
  - Fatigue [Unknown]
  - Nasopharyngitis [Unknown]
  - Product use in unapproved indication [Unknown]

NARRATIVE: CASE EVENT DATE: 20240101
